FAERS Safety Report 5721556-2 (Version None)
Quarter: 2008Q2

REPORT INFORMATION
  Report Type: 
  Country: None (occurrence: None)
  Receive Date: 20080429
  Receipt Date: 20070319
  Transmission Date: 20081010
  Serious: No
  Sender: FDA-Public Use
  Company Number: US-ASTRAZENECA-2007UW05376

PATIENT
  Age: 68 Year
  Sex: Female
  Weight: 70.3 kg

DRUGS (7)
  1. NEXIUM [Suspect]
     Indication: GASTROOESOPHAGEAL REFLUX DISEASE
     Route: 048
  2. NEXIUM [Suspect]
     Indication: HIATUS HERNIA
     Route: 048
  3. NEXIUM [Suspect]
     Route: 048
  4. NEXIUM [Suspect]
     Route: 048
  5. NASAL SPRAY [Concomitant]
     Indication: OSTEOPENIA
  6. MYCALCIN [Concomitant]
  7. PREMARIN [Concomitant]
     Dates: end: 20070101

REACTIONS (3)
  - CHEST PAIN [None]
  - COUGH [None]
  - INCREASED UPPER AIRWAY SECRETION [None]
